FAERS Safety Report 9663832 (Version 1)
Quarter: 2013Q4

REPORT INFORMATION
  Report Type: Spontaneous
  Country: US (occurrence: US)
  Receive Date: 20131101
  Receipt Date: 20131101
  Transmission Date: 20140711
  Serious: Yes (Other)
  Sender: FDA-Public Use
  Company Number: US-AMGEN-USASP2013076506

PATIENT
  Sex: Female

DRUGS (1)
  1. PROLIA [Suspect]
     Indication: PRODUCT USED FOR UNKNOWN INDICATION
     Dosage: UNK
     Route: 058
     Dates: start: 201112

REACTIONS (7)
  - Facial bones fracture [Unknown]
  - Femur fracture [Unknown]
  - Upper limb fracture [Unknown]
  - Rib fracture [Unknown]
  - Intestinal obstruction [Unknown]
  - Bone disorder [Unknown]
  - Fall [Unknown]
